FAERS Safety Report 6318080-5 (Version None)
Quarter: 2009Q3

REPORT INFORMATION
  Report Type: 
  Country: None (occurrence: None)
  Receive Date: 20090821
  Receipt Date: 20090817
  Transmission Date: 20100115
  Serious: Yes (Other)
  Sender: FDA-Public Use
  Company Number: US-BAYER-200913147BCC

PATIENT
  Age: 0 Hour
  Sex: Female
  Weight: 1.361 kg

DRUGS (4)
  1. FLINTSTONES COMPLETE [Suspect]
     Indication: VITAMIN SUPPLEMENTATION
     Dosage: CHILD RECEIVED BREAST MILK
     Route: 063
  2. FLINTSTONES COMPLETE [Suspect]
     Route: 064
     Dates: end: 20090628
  3. ASPIRIN [Suspect]
     Indication: BLOOD TEST ABNORMAL
     Route: 064
     Dates: end: 20090628
  4. CAFFEINE CITRATE [Concomitant]
     Indication: DYSPNOEA
     Route: 065

REACTIONS (2)
  - HEART DISEASE CONGENITAL [None]
  - PREMATURE BABY [None]
